FAERS Safety Report 12565282 (Version 1)
Quarter: 2016Q3

REPORT INFORMATION
  Report Type: Spontaneous
  Country: JO (occurrence: None)
  Receive Date: 20160715
  Receipt Date: 20160715
  Transmission Date: 20161109
  Serious: Yes (Other)
  Sender: FDA-Public Use
  Company Number: None

PATIENT
  Age: 74 Year
  Sex: Male

DRUGS (2)
  1. ATROVASTATIN, 10 MG [Suspect]
     Active Substance: ATORVASTATIN CALCIUM
     Indication: BLOOD CHOLESTEROL INCREASED
     Dates: start: 20140611, end: 20160705
  2. ATROVASTATIN, 10 MG [Suspect]
     Active Substance: ATORVASTATIN CALCIUM
     Indication: BLOOD TRIGLYCERIDES ABNORMAL
     Dates: start: 20140611, end: 20160705

REACTIONS (7)
  - Memory impairment [None]
  - Rash [None]
  - Muscular weakness [None]
  - Liver function test increased [None]
  - Therapy cessation [None]
  - Asthenia [None]
  - Constipation [None]

NARRATIVE: CASE EVENT DATE: 20160714
